FAERS Safety Report 7978465-8 (Version None)
Quarter: 2011Q4

REPORT INFORMATION
  Report Type: 
  Country: None (occurrence: None)
  Receive Date: 20111214
  Receipt Date: 20111201
  Transmission Date: 20120403
  Serious: Yes (Other)
  Sender: FDA-Public Use
  Company Number: SE-ELI_LILLY_AND_COMPANY-SE201111003396

PATIENT
  Sex: Male
  Weight: 35 kg

DRUGS (5)
  1. FLUTICASONE PROPIONATE [Concomitant]
     Indication: NASOPHARYNGITIS
     Dosage: 100 MG, BID
  2. STRATTERA [Suspect]
     Indication: ATTENTION DEFICIT/HYPERACTIVITY DISORDER
     Dosage: 10 MG, UNK
     Dates: start: 20100901, end: 20101201
  3. VENTOLIN [Concomitant]
     Dosage: 0.2 MG, PRN
  4. STRATTERA [Suspect]
     Dosage: 40 MG, UNK
  5. MOVIPREP [Concomitant]
     Indication: CONSTIPATION

REACTIONS (2)
  - HOMICIDAL IDEATION [None]
  - SUICIDAL IDEATION [None]
